FAERS Safety Report 19367205 (Version 1)
Quarter: 2021Q2

REPORT INFORMATION
  Report Type: Spontaneous
  Country: US (occurrence: US)
  Receive Date: 20210603
  Receipt Date: 20210603
  Transmission Date: 20210717
  Serious: Yes (Hospitalization)
  Sender: FDA-Public Use
  Company Number: US-LUPIN PHARMACEUTICALS INC.-2021-08492

PATIENT
  Age: 33 Year
  Sex: Male

DRUGS (1)
  1. PHENELZINE SULFATE. [Suspect]
     Active Substance: PHENELZINE SULFATE
     Indication: PRODUCT USED FOR UNKNOWN INDICATION
     Dosage: UNK, ACCIDENTALLY TAKING AN EXTRA DOSE THAN RECOMMENDED
     Route: 065

REACTIONS (3)
  - Accidental overdose [Unknown]
  - Stress cardiomyopathy [Recovering/Resolving]
  - Hypotension [Recovering/Resolving]
